FAERS Safety Report 8996233 (Version 1)
Quarter: 2013Q1

REPORT INFORMATION
  Report Type: Spontaneous
  Country: DE (occurrence: DE)
  Receive Date: 20130103
  Receipt Date: 20130103
  Transmission Date: 20140127
  Serious: Yes (Hospitalization, Other)
  Sender: FDA-Public Use
  Company Number: DE-ABBOTT-12P-062-0950751-00

PATIENT
  Sex: Male

DRUGS (1)
  1. LUPRON DEPOT 11.25 MG [Suspect]
     Indication: MATERNAL EXPOSURE TIMING UNSPECIFIED
     Route: 064

REACTIONS (2)
  - Bradycardia [Unknown]
  - Foetal exposure during pregnancy [Unknown]
